FAERS Safety Report 5852735-1 (Version None)
Quarter: 2008Q3

REPORT INFORMATION
  Report Type: 
  Country: None (occurrence: None)
  Receive Date: 20080821
  Receipt Date: 20080812
  Transmission Date: 20090109
  Serious: Yes (Hospitalization)
  Sender: FDA-Public Use
  Company Number: FR-AVENTIS-200814260EU

PATIENT
  Age: 73 Year
  Sex: Female

DRUGS (9)
  1. FLUDEX                             /00340101/ [Suspect]
     Route: 048
     Dates: end: 20080629
  2. ROCALTROL [Suspect]
     Indication: OSTEOPOROSIS
     Route: 048
     Dates: end: 20080629
  3. BETAFERON                          /00596803/ [Concomitant]
  4. PREDNISONE TAB [Concomitant]
  5. FOSAMAX [Concomitant]
  6. ACIDUM FOLICUM [Concomitant]
  7. VITAMIN E-100 [Concomitant]
  8. ZANTAC [Concomitant]
  9. BECOZYM                            /00314701/ [Concomitant]

REACTIONS (2)
  - HYPERCALCAEMIA [None]
  - PANCREATITIS [None]
